FAERS Safety Report 4897023-5 (Version None)
Quarter: 2005Q4

REPORT INFORMATION
  Report Type: 
  Country: None (occurrence: None)
  Receive Date: 20051228
  Receipt Date: 20050301
  Transmission Date: 20060501
  Serious: Yes (Hospitalization)
  Sender: FDA-Public Use
  Company Number: USA041183435

PATIENT
  Age: 75 Year
  Sex: Female

DRUGS (2)
  1. HUMULIN N [Suspect]
     Indication: DIABETES MELLITUS
  2. HUMULIN 70/30 [Suspect]

REACTIONS (5)
  - BLOOD GLUCOSE DECREASED [None]
  - CARDIAC DISORDER [None]
  - DIABETIC COMPLICATION [None]
  - FALL [None]
  - THYROID DISORDER [None]
